FAERS Safety Report 6211319-6 (Version None)
Quarter: 2009Q2

REPORT INFORMATION
  Report Type: 
  Country: None (occurrence: None)
  Receive Date: 20090522
  Receipt Date: 20090122
  Transmission Date: 20091009
  Serious: No
  Sender: FDA-Public Use
  Company Number: 8041503

PATIENT
  Age: 51 Year
  Sex: Female
  Weight: 100 kg

DRUGS (7)
  1. CIMZIA [Suspect]
     Indication: CROHN'S DISEASE
     Dosage: 400 MG SC
     Route: 058
     Dates: start: 20080722
  2. PREDNISONE [Concomitant]
  3. VITAMIN B-12 [Concomitant]
  4. MULTI-VITAMIN [Concomitant]
  5. CALTRATE + D [Concomitant]
  6. PRILOSEC [Concomitant]
  7. ALPRAZOLAM [Concomitant]

REACTIONS (3)
  - ARTHRALGIA [None]
  - CROHN'S DISEASE [None]
  - PYREXIA [None]
